FAERS Safety Report 9676222 (Version 2)
Quarter: 2013Q4

REPORT INFORMATION
  Report Type: Report from Study
  Country: DE (occurrence: DE)
  Receive Date: 20131107
  Receipt Date: 20131107
  Transmission Date: 20140711
  Serious: Yes (Hospitalization)
  Sender: FDA-Public Use
  Company Number: DE-VERTEX PHARMACEUTICALS INC-000000000000000297

PATIENT
  Age: 53 Year
  Sex: Female
  Weight: 58 kg

DRUGS (5)
  1. VX-950 (TELAPREVIR) [Suspect]
     Indication: HEPATITIS C
     Dosage: DOSAGE FORM: TABLET
     Route: 048
     Dates: start: 20120111
  2. PEGASYS [Suspect]
     Indication: HEPATITIS C
     Dosage: 135 ?G, QW
     Route: 058
     Dates: start: 20120223
  3. PEGASYS [Suspect]
     Dosage: 180 ?G, QW
     Route: 058
     Dates: start: 20120111, end: 20120222
  4. COPEGUS [Concomitant]
     Indication: HEPATITIS C
     Route: 048
     Dates: start: 20120111, end: 20120208
  5. COPEGUS [Concomitant]
     Dosage: 600 MG, UNK
     Route: 048
     Dates: start: 20120209

REACTIONS (1)
  - Asthma [Recovered/Resolved]
